FAERS Safety Report 4943831-1 (Version None)
Quarter: 2006Q1

REPORT INFORMATION
  Report Type: 
  Country: None (occurrence: None)
  Receive Date: 20060310
  Receipt Date: 20060227
  Transmission Date: 20060701
  Serious: Yes (Hospitalization)
  Sender: FDA-Public Use
  Company Number: 2006014977

PATIENT
  Age: 32 Year
  Sex: Male

DRUGS (1)
  1. MEDROL [Suspect]
     Indication: ECZEMA
     Dosage: 16 MG (16 MG, 1 IN 1 D), ORAL
     Route: 048

REACTIONS (5)
  - ANOREXIA [None]
  - ANXIETY [None]
  - DEHYDRATION [None]
  - DIZZINESS [None]
  - MUSCLE SPASMS [None]
